FAERS Safety Report 7892893-0 (Version None)
Quarter: 2011Q4

REPORT INFORMATION
  Report Type: 
  Country: None (occurrence: None)
  Receive Date: 20111104
  Receipt Date: 20111027
  Transmission Date: 20120403
  Serious: Yes (Other)
  Sender: FDA-Public Use
  Company Number: US-RB-029055-11

PATIENT
  Age: 25 Year
  Sex: Female

DRUGS (1)
  1. MUCINEX DM [Suspect]
     Route: 048
     Dates: start: 20111015

REACTIONS (10)
  - VOMITING [None]
  - DISORIENTATION [None]
  - NAUSEA [None]
  - ACCIDENTAL OVERDOSE [None]
  - HYPOTENSION [None]
  - COLD SWEAT [None]
  - LOSS OF CONSCIOUSNESS [None]
  - DEHYDRATION [None]
  - DIARRHOEA [None]
  - ABDOMINAL PAIN UPPER [None]
